FAERS Safety Report 6044001-9 (Version None)
Quarter: 2009Q1

REPORT INFORMATION
  Report Type: 
  Country: None (occurrence: None)
  Receive Date: 20090120
  Receipt Date: 20090107
  Transmission Date: 20090719
  Serious: Yes (Death, Life-Threatening, Hospitalization)
  Sender: FDA-Public Use
  Company Number: JP-EISAI MEDICAL RESEARCH-E2090-00559-SPO-JP

PATIENT
  Sex: Female

DRUGS (7)
  1. EXCEGRAN [Suspect]
     Indication: EPILEPSY
     Route: 048
     Dates: start: 20080806, end: 20080917
  2. EXCEGRAN [Suspect]
     Indication: BRAIN TUMOUR OPERATION
  3. RISPERDAL [Suspect]
     Indication: EPILEPSY
     Route: 048
     Dates: start: 20080809, end: 20080917
  4. TEMODAL [Suspect]
     Indication: BRAIN NEOPLASM
     Route: 048
     Dates: start: 20080827, end: 20080906
  5. TAKEPRON [Suspect]
     Indication: STRESS ULCER
     Route: 048
     Dates: start: 20080812, end: 20080917
  6. ZOFRAN ZYDIS [Suspect]
     Indication: PROPHYLAXIS OF NAUSEA AND VOMITING
     Route: 048
     Dates: start: 20080827, end: 20080906
  7. BAKTAR [Suspect]
     Indication: INFECTION PROPHYLAXIS
     Dosage: UNKNOWN
     Route: 048
     Dates: start: 20080827, end: 20080906

REACTIONS (6)
  - GASTROINTESTINAL HAEMORRHAGE [None]
  - HEPATIC FUNCTION ABNORMAL [None]
  - JAUNDICE [None]
  - MOUTH ULCERATION [None]
  - RASH GENERALISED [None]
  - WHITE BLOOD CELL COUNT DECREASED [None]
